FAERS Safety Report 26037356 (Version 1)
Quarter: 2025Q4

REPORT INFORMATION
  Report Type: Spontaneous
  Country: GB (occurrence: GB)
  Receive Date: 20251112
  Receipt Date: 20251112
  Transmission Date: 20260117
  Serious: Yes (Other)
  Sender: MYLAN
  Company Number: None

PATIENT
  Age: 27 Year
  Sex: Female

DRUGS (2)
  1. SERTRALINE [Suspect]
     Active Substance: SERTRALINE HYDROCHLORIDE
     Indication: Mixed anxiety and depressive disorder
     Dosage: 100 MILLIGRAM
  2. DESOGESTREL [Concomitant]
     Active Substance: DESOGESTREL
     Indication: Migraine
     Dosage: UNK

REACTIONS (1)
  - Gastrooesophageal reflux disease [Recovered/Resolved]
